FAERS Safety Report 21844641 (Version 1)
Quarter: 2023Q1

REPORT INFORMATION
  Report Type: Spontaneous
  Country: US (occurrence: US)
  Receive Date: 20230110
  Receipt Date: 20230110
  Transmission Date: 20230418
  Serious: No
  Sender: FDA-Public Use
  Company Number: US-ELI_LILLY_AND_COMPANY-US202212011007

PATIENT
  Sex: Female

DRUGS (1)
  1. TALTZ [Suspect]
     Active Substance: IXEKIZUMAB
     Indication: Psoriasis
     Dosage: 80 MG, MONTHLY (1/M)
     Route: 065
     Dates: start: 2021

REACTIONS (8)
  - Abdominal distension [Unknown]
  - Flatulence [Unknown]
  - Gastritis [Unknown]
  - Abdominal discomfort [Unknown]
  - Diarrhoea [Unknown]
  - Constipation [Unknown]
  - Localised infection [Unknown]
  - Haemorrhoids [Unknown]
